FAERS Safety Report 15649711 (Version 2)
Quarter: 2019Q1

REPORT INFORMATION
  Report Type: Spontaneous
  Country: US (occurrence: US)
  Receive Date: 20181122
  Receipt Date: 20190116
  Transmission Date: 20190417
  Serious: No
  Sender: FDA-Public Use
  Company Number: US-TEVA-2018-US-977644

PATIENT
  Sex: Female

DRUGS (1)
  1. SUCRALFATE TEVA [Suspect]
     Active Substance: SUCRALFATE
     Indication: ULCER
     Route: 065

REACTIONS (4)
  - Drug ineffective [Unknown]
  - Product substitution issue [Unknown]
  - Abdominal pain upper [Unknown]
  - Drug intolerance [Unknown]
